FAERS Safety Report 6719564-8 (Version None)
Quarter: 2010Q2

REPORT INFORMATION
  Report Type: 
  Country: None (occurrence: None)
  Receive Date: 20100510
  Receipt Date: 20100510
  Transmission Date: 20101027
  Serious: Yes (Disabling)
  Sender: FDA-Public Use
  Company Number: None

PATIENT
  Age: 33 Year
  Sex: Female
  Weight: 61.2356 kg

DRUGS (2)
  1. DOXY 100 [Suspect]
     Indication: LYME DISEASE
     Dosage: 150 MG TABLET 1/DAY PO
     Route: 048
     Dates: start: 20100218, end: 20100226
  2. DOXY 100 [Suspect]
     Indication: LYME DISEASE
     Dosage: 150 MG TABLET 1/DAY PO
     Route: 048
     Dates: start: 20100310, end: 20100324

REACTIONS (2)
  - STEVENS-JOHNSON SYNDROME [None]
  - THERMAL BURN [None]
